FAERS Safety Report 6966425-5 (Version None)
Quarter: 2010Q3

REPORT INFORMATION
  Report Type: 
  Country: None (occurrence: None)
  Receive Date: 20100906
  Receipt Date: 20100831
  Transmission Date: 20110219
  Serious: Yes (Other)
  Sender: FDA-Public Use
  Company Number: AR-BRISTOL-MYERS SQUIBB COMPANY-15106149

PATIENT
  Age: 70 Year
  Sex: Female

DRUGS (1)
  1. DASATINIB [Suspect]
     Indication: CHRONIC MYELOID LEUKAEMIA
     Dosage: INTERRUPTED IN APRIL 2010
     Route: 048
     Dates: start: 20080101

REACTIONS (2)
  - MALIGNANT PERITONEAL NEOPLASM [None]
  - PLEURAL EFFUSION [None]
